FAERS Safety Report 10796495 (Version 1)
Quarter: 2015Q1

REPORT INFORMATION
  Report Type: Report from Study
  Country: PR (occurrence: PR)
  Receive Date: 20150216
  Receipt Date: 20150216
  Transmission Date: 20150721
  Serious: No
  Sender: FDA-Public Use
  Company Number: PR-ABBVIE-12P-131-0931080-00

PATIENT
  Sex: Female
  Weight: 68.1 kg

DRUGS (5)
  1. MELOXICAM. [Concomitant]
     Active Substance: MELOXICAM
     Indication: RHEUMATOID ARTHRITIS
  2. HUMIRA [Suspect]
     Active Substance: ADALIMUMAB
     Indication: RHEUMATOID ARTHRITIS
     Route: 058
     Dates: start: 2011, end: 2013
  3. METROPOLYN [Concomitant]
     Indication: HYPERTENSION
  4. ENALAPRIL [Concomitant]
     Active Substance: ENALAPRIL
     Indication: HYPERTENSION
  5. METHOTREXATE [Concomitant]
     Active Substance: METHOTREXATE
     Indication: RHEUMATOID ARTHRITIS

REACTIONS (12)
  - Liver disorder [Unknown]
  - Bone pain [Unknown]
  - Genital infection fungal [Recovered/Resolved]
  - Drug dose omission [Unknown]
  - Inflammation [Recovered/Resolved]
  - Swelling [Recovered/Resolved]
  - Fungal infection [Recovered/Resolved]
  - Pruritus [Recovered/Resolved]
  - Arthralgia [Recovering/Resolving]
  - Inflammation [Unknown]
  - Joint swelling [Recovered/Resolved]
  - Musculoskeletal stiffness [Unknown]

NARRATIVE: CASE EVENT DATE: 2011
